FAERS Safety Report 5754582-8 (Version None)
Quarter: 2008Q2

REPORT INFORMATION
  Report Type: 
  Country: None (occurrence: None)
  Receive Date: 20080530
  Receipt Date: 20080519
  Transmission Date: 20081010
  Serious: Yes (Other)
  Sender: FDA-Public Use
  Company Number: FR-PFIZER INC-2008043548

PATIENT
  Sex: Male
  Weight: 77 kg

DRUGS (13)
  1. VFEND [Suspect]
     Dosage: DAILY DOSE:400MG
     Route: 048
     Dates: start: 20080202, end: 20080219
  2. CYCLOSPORINE [Concomitant]
     Route: 042
  3. CYCLOSPORINE [Concomitant]
     Dosage: DAILY DOSE:400MG
     Route: 048
  4. IMUREL [Concomitant]
     Dosage: DAILY DOSE:100MG
     Route: 048
  5. PREDNISONE [Concomitant]
     Dosage: DAILY DOSE:60MG
     Route: 048
  6. FORTUM [Concomitant]
     Dosage: DAILY DOSE:6GRAM
     Route: 042
     Dates: start: 20080131, end: 20080215
  7. CIPROFLOXACIN HCL [Concomitant]
     Dosage: DAILY DOSE:800MG
     Route: 048
     Dates: start: 20080131, end: 20080205
  8. CIPROFLOXACIN HCL [Concomitant]
     Dosage: DAILY DOSE:1000MG
     Route: 048
     Dates: start: 20080206, end: 20080215
  9. CYMEVAN [Concomitant]
     Dosage: DAILY DOSE:400MG
     Route: 042
     Dates: start: 20080131, end: 20080205
  10. VALGANCICLOVIR HCL [Concomitant]
     Dosage: DAILY DOSE:900MG
     Route: 048
  11. FOLIC ACID [Concomitant]
     Dosage: DAILY DOSE:.4MG
     Route: 048
     Dates: start: 20080210, end: 20080212
  12. CACIT D3 [Concomitant]
     Dosage: TEXT:1 G / 880 IU
     Route: 048
  13. JOSIR [Concomitant]
     Dosage: DAILY DOSE:.4MG
     Route: 048

REACTIONS (2)
  - CHOLESTASIS [None]
  - CYTOLYTIC HEPATITIS [None]
